FAERS Safety Report 5700052-2 (Version None)
Quarter: 2008Q2

REPORT INFORMATION
  Report Type: 
  Country: None (occurrence: None)
  Receive Date: 20080410
  Receipt Date: 20080328
  Transmission Date: 20081010
  Serious: Yes (Hospitalization, Disabling, Other)
  Sender: FDA-Public Use
  Company Number: US-ROCHE-419573

PATIENT
  Sex: Male
  Weight: 52.2 kg

DRUGS (11)
  1. ACCUTANE [Suspect]
     Route: 048
     Dates: start: 19940801, end: 19940901
  2. ACCUTANE [Suspect]
     Route: 048
     Dates: start: 19980101, end: 19980601
  3. ACCUTANE [Suspect]
     Route: 048
     Dates: start: 19980801, end: 19990901
  4. ACCUTANE [Suspect]
     Route: 048
     Dates: start: 20000127, end: 20001001
  5. ACCUTANE [Suspect]
     Dosage: ONGOING ON 25 AUGUST 2000.
     Route: 048
  6. ACCUTANE [Suspect]
     Route: 048
     Dates: start: 20021125, end: 20030201
  7. ACCUTANE [Suspect]
     Route: 048
     Dates: start: 20030402, end: 20030401
  8. AMNESTEEM [Suspect]
     Indication: DRUG USE FOR UNKNOWN INDICATION
     Route: 048
     Dates: start: 20030313, end: 20030401
  9. VICODIN [Concomitant]
     Dosage: REPORTED AS: 1-2 Q4H PRN.
     Route: 048
     Dates: start: 20021231
  10. VICODIN [Concomitant]
     Dosage: REPORTED AS: 1-2 Q4H PRN.
     Route: 048
     Dates: start: 20021231
  11. TYLENOL (CAPLET) [Concomitant]
     Dates: start: 20030101

REACTIONS (18)
  - ALANINE AMINOTRANSFERASE INCREASED [None]
  - ANXIETY [None]
  - BLOOD CHOLESTEROL INCREASED [None]
  - COLITIS [None]
  - COLITIS ULCERATIVE [None]
  - CROHN'S DISEASE [None]
  - DEPRESSION [None]
  - GASTRIC DISORDER [None]
  - GASTROINTESTINAL DISORDER [None]
  - INFLAMMATORY BOWEL DISEASE [None]
  - INTESTINAL HAEMORRHAGE [None]
  - IRRITABLE BOWEL SYNDROME [None]
  - LIVER FUNCTION TEST ABNORMAL [None]
  - PANIC ATTACK [None]
  - PHARYNGEAL ULCERATION [None]
  - PSEUDOPOLYP [None]
  - RASH [None]
  - VIRAL UPPER RESPIRATORY TRACT INFECTION [None]
